FAERS Safety Report 6468647-9 (Version None)
Quarter: 2009Q4

REPORT INFORMATION
  Report Type: 
  Country: None (occurrence: None)
  Receive Date: 20091203
  Receipt Date: 20091123
  Transmission Date: 20100525
  Serious: Yes (Other)
  Sender: FDA-Public Use
  Company Number: ZA-JNJFOC-20091106755

PATIENT
  Sex: Male
  Weight: 96 kg

DRUGS (1)
  1. REVELLEX [Suspect]
     Indication: ANKYLOSING SPONDYLITIS
     Route: 042
     Dates: start: 20081008, end: 20091009

REACTIONS (1)
  - LUNG NEOPLASM MALIGNANT [None]
